FAERS Safety Report 16114887 (Version 1)
Quarter: 2019Q1

REPORT INFORMATION
  Report Type: Spontaneous
  Country: DE (occurrence: DE)
  Receive Date: 20190325
  Receipt Date: 20190325
  Transmission Date: 20190418
  Serious: Yes (Hospitalization)
  Sender: FDA-Public Use
  Company Number: DE-PFIZER INC-2019121913

PATIENT
  Age: 71 Year
  Sex: Female

DRUGS (2)
  1. NORVASC [Suspect]
     Active Substance: AMLODIPINE BESYLATE
     Indication: BLOOD PRESSURE INCREASED
     Dosage: 2.5 MG, UNK
  2. NORVASC [Suspect]
     Active Substance: AMLODIPINE BESYLATE
     Dosage: 5 MG, UNK

REACTIONS (6)
  - Neck pain [Unknown]
  - Headache [Unknown]
  - Gastritis [Unknown]
  - Myalgia [Unknown]
  - Blood pressure inadequately controlled [Unknown]
  - Arthralgia [Unknown]
